FAERS Safety Report 19816465 (Version 1)
Quarter: 2021Q3

REPORT INFORMATION
  Report Type: Spontaneous
  Country: GB (occurrence: GB)
  Receive Date: 20210909
  Receipt Date: 20210909
  Transmission Date: 20211014
  Serious: Yes (Hospitalization, Congenital Anomaly)
  Sender: FDA-Public Use
  Company Number: GB-CANTON LABORATORIES, LLC-2118227

PATIENT
  Age: 56 Year
  Sex: Male

DRUGS (9)
  1. AMLODIPINE [Concomitant]
     Active Substance: AMLODIPINE BESYLATE
  2. IBUPROFEN. [Concomitant]
     Active Substance: IBUPROFEN
  3. AMITRIPTYLINE HYDROCHLORIDE. [Concomitant]
     Active Substance: AMITRIPTYLINE HYDROCHLORIDE
  4. BETAHISTINE [Concomitant]
     Active Substance: BETAHISTINE
  5. LANSOPRAZOLE. [Concomitant]
     Active Substance: LANSOPRAZOLE
  6. PROPRANOLOL [Concomitant]
     Active Substance: PROPRANOLOL HYDROCHLORIDE
  7. NAPROSYN [Suspect]
     Active Substance: NAPROXEN
     Indication: OSTEOARTHRITIS
     Route: 048
     Dates: start: 202106, end: 202106
  8. FOLIC ACID. [Concomitant]
     Active Substance: FOLIC ACID
  9. INDAPAMIDE. [Concomitant]
     Active Substance: INDAPAMIDE

REACTIONS (4)
  - Reflux gastritis [Unknown]
  - Headache [Unknown]
  - Anxiety [Unknown]
  - Tinnitus [Not Recovered/Not Resolved]

NARRATIVE: CASE EVENT DATE: 202106
